FAERS Safety Report 14188045 (Version 2)
Quarter: 2017Q4

REPORT INFORMATION
  Report Type: Spontaneous
  Country: US (occurrence: US)
  Receive Date: 20171114
  Receipt Date: 20171227
  Transmission Date: 20180321
  Serious: No
  Sender: FDA-Public Use
  Company Number: US-BAYER-2017-218572

PATIENT
  Age: 75 Year
  Sex: Female

DRUGS (1)
  1. BETASERON [Suspect]
     Active Substance: INTERFERON BETA-1B
     Indication: MULTIPLE SCLEROSIS
     Dosage: UNK UNK, QOD 0.3
     Route: 058
     Dates: start: 20130204

REACTIONS (4)
  - Fatigue [None]
  - Memory impairment [None]
  - Mobility decreased [None]
  - Fall [None]
